FAERS Safety Report 24712308 (Version 1)
Quarter: 2024Q4

REPORT INFORMATION
  Report Type: Spontaneous
  Country: US (occurrence: US)
  Receive Date: 20241209
  Receipt Date: 20241209
  Transmission Date: 20250115
  Serious: Yes (Other)
  Sender: Alora Pharma
  Company Number: US-ACELLA PHARMACEUTICALS, LLC-2024ALO00070

PATIENT
  Sex: Female

DRUGS (1)
  1. DSUVIA [Suspect]
     Active Substance: SUFENTANIL

REACTIONS (3)
  - Hypotension [Unknown]
  - Malaise [Unknown]
  - Nausea [Unknown]
